FAERS Safety Report 7557261-X (Version None)
Quarter: 2011Q2

REPORT INFORMATION
  Report Type: 
  Country: None (occurrence: None)
  Receive Date: 20110620
  Receipt Date: 20060110
  Transmission Date: 20111010
  Serious: Yes (Death, Hospitalization)
  Sender: FDA-Public Use
  Company Number: PHHO2005BR20146

PATIENT
  Age: 65 Year
  Sex: Female

DRUGS (7)
  1. PREDNISONE [Concomitant]
  2. AMINOPHYLLIN TAB [Concomitant]
  3. HYDROCORTISONE [Concomitant]
  4. BUDESONIDE [Suspect]
     Indication: CHRONIC OBSTRUCTIVE PULMONARY DISEASE
     Dosage: 1 CAPS DAILY
  5. LOSARTAN POTASSIUM [Concomitant]
     Indication: HYPERTENSION
  6. FORMOTEROL FUMARATE [Suspect]
     Indication: CHRONIC OBSTRUCTIVE PULMONARY DISEASE
     Dosage: 12/400 MCG BID
  7. FUROSEMIDE [Suspect]

REACTIONS (8)
  - RESPIRATORY FAILURE [None]
  - ASTHMA [None]
  - DYSPNOEA [None]
  - CEREBROVASCULAR ACCIDENT [None]
  - BLOOD POTASSIUM DECREASED [None]
  - PULMONARY EMBOLISM [None]
  - BRONCHOPNEUMONIA [None]
  - FATIGUE [None]
